FAERS Safety Report 25915364 (Version 1)
Quarter: 2025Q4

REPORT INFORMATION
  Report Type: Spontaneous
  Country: US (occurrence: US)
  Receive Date: 20251013
  Receipt Date: 20251013
  Transmission Date: 20260118
  Serious: No
  Sender: ANI
  Company Number: US-ANIPHARMA-2025-US-034108

PATIENT
  Age: 48 Year
  Sex: Female
  Weight: 57.15 kg

DRUGS (10)
  1. CORTICOTROPIN [Suspect]
     Active Substance: CORTICOTROPIN
     Indication: Nephrotic syndrome
     Dosage: INJECT 80 UNITS (1ML) SUBCUTANEOUSLY TWO TIMES PER WEEK
     Route: 058
     Dates: start: 202506
  2. ROSUVASTATIN [Concomitant]
     Active Substance: ROSUVASTATIN
  3. FILSPARI [Concomitant]
     Active Substance: SPARSENTAN
  4. TORSEMIDE [Concomitant]
     Active Substance: TORSEMIDE
  5. AMLODIPINE BESYLATE [Concomitant]
     Active Substance: AMLODIPINE BESYLATE
  6. HYDROCHLORIC ACID [Concomitant]
     Active Substance: HYDROCHLORIC ACID
  7. IRBESARTAN [Concomitant]
     Active Substance: IRBESARTAN
  8. POTASSIUM [Concomitant]
     Active Substance: POTASSIUM
  9. HYDRALAZINE [Concomitant]
     Active Substance: HYDRALAZINE HYDROCHLORIDE
  10. METOLAZONE [Concomitant]
     Active Substance: METOLAZONE

REACTIONS (3)
  - Hypotension [Recovering/Resolving]
  - Contraindicated product administered [Not Recovered/Not Resolved]
  - Heart rate decreased [Unknown]

NARRATIVE: CASE EVENT DATE: 20250601
